FAERS Safety Report 26022388 (Version 1)
Quarter: 2025Q4

REPORT INFORMATION
  Report Type: Spontaneous
  Country: US (occurrence: US)
  Receive Date: 20251110
  Receipt Date: 20251110
  Transmission Date: 20260118
  Serious: Yes (Other)
  Sender: NOVO NORDISK
  Company Number: US-NOVOPROD-1559459

PATIENT
  Sex: Male

DRUGS (1)
  1. NOVOLOG [Suspect]
     Active Substance: INSULIN ASPART
     Indication: Type 2 diabetes mellitus
     Dosage: SLIDING SCALE

REACTIONS (7)
  - Surgery [Unknown]
  - Iatrogenic injury [Unknown]
  - Lagophthalmos [Unknown]
  - Dry eye [Recovering/Resolving]
  - Ocular cyst [Recovering/Resolving]
  - Visual impairment [Unknown]
  - Surgery [Unknown]
